FAERS Safety Report 15203450 (Version 1)
Quarter: 2018Q3

REPORT INFORMATION
  Report Type: Report from Study
  Country: FR (occurrence: FR)
  Receive Date: 20180726
  Receipt Date: 20180726
  Transmission Date: 20181010
  Serious: Yes (Other)
  Sender: FDA-Public Use
  Company Number: FR-SA-2018SA145414

PATIENT
  Age: 11 Year
  Sex: Female
  Weight: 46 kg

DRUGS (9)
  1. METHYLPREDNISOLONE. [Concomitant]
     Active Substance: METHYLPREDNISOLONE
     Indication: PREMEDICATION
     Dosage: 14 MG
     Route: 041
     Dates: start: 20180508, end: 20180509
  2. BACTRIM [Concomitant]
     Active Substance: SULFAMETHOXAZOLE\TRIMETHOPRIM
     Indication: PROPHYLAXIS
     Dosage: 800 MG, QD
     Route: 048
     Dates: start: 20180418, end: 20180530
  3. DEXCHLORPHENIRAMINE [Concomitant]
     Active Substance: DEXCHLORPHENIRAMINE
     Indication: PREMEDICATION
     Dosage: 5 MG
     Route: 041
     Dates: start: 20180508, end: 20180509
  4. ALEMTUZUMAB [Suspect]
     Active Substance: ALEMTUZUMAB
     Indication: LYMPHOHISTIOCYTOSIS
     Dosage: 23.4 MG, 1X
     Route: 041
     Dates: start: 20180423, end: 20180423
  5. SULFAMETHOXAZOLE/TRIMETHOPRIM [Suspect]
     Active Substance: SULFAMETHOXAZOLE\TRIMETHOPRIM
  6. KEPPRA [Concomitant]
     Active Substance: LEVETIRACETAM
     Indication: EPILEPSY
     Dosage: 1000 MG, QD
     Route: 048
  7. ALEMTUZUMAB [Suspect]
     Active Substance: ALEMTUZUMAB
     Dosage: 30 MG, TWICE
     Route: 041
     Dates: start: 20180424, end: 20180425
  8. ALEMTUZUMAB [Suspect]
     Active Substance: ALEMTUZUMAB
     Dosage: 30 MG, TWICE
     Route: 041
     Dates: start: 20180508, end: 20180509
  9. ZOVIRAX [ACICLOVIR] [Concomitant]
     Indication: PROPHYLAXIS
     Dosage: 1500 MG, QD
     Route: 041
     Dates: start: 20180430, end: 20180628

REACTIONS (1)
  - Neutropenia [Recovered/Resolved]

NARRATIVE: CASE EVENT DATE: 20180522
